FAERS Safety Report 18595510 (Version 1)
Quarter: 2020Q4

REPORT INFORMATION
  Report Type: Report from Study
  Country: US (occurrence: US)
  Receive Date: 20201209
  Receipt Date: 20201209
  Transmission Date: 20210114
  Serious: Yes (Other)
  Sender: FDA-Public Use
  Company Number: US-MYLANLABS-2020M1101110

PATIENT
  Age: 48 Year
  Sex: Male

DRUGS (8)
  1. ENOXAPARIN [Suspect]
     Active Substance: ENOXAPARIN
     Indication: PROPHYLAXIS
  2. WARFARIN [Suspect]
     Active Substance: WARFARIN
     Indication: HYPERCOAGULATION
     Dosage: INR TARGET OF 2-2.5
     Route: 065
  3. ENOXAPARIN [Suspect]
     Active Substance: ENOXAPARIN
     Indication: OSTEONECROSIS
  4. WARFARIN [Suspect]
     Active Substance: WARFARIN
     Indication: OSTEONECROSIS
  5. WARFARIN [Suspect]
     Active Substance: WARFARIN
     Indication: PROPHYLAXIS
  6. ENOXAPARIN [Suspect]
     Active Substance: ENOXAPARIN
     Indication: HYPERCOAGULATION
     Dosage: 60 MILLIGRAM, QD
     Route: 065
  7. ENOXAPARIN [Suspect]
     Active Substance: ENOXAPARIN
     Indication: ANTICOAGULANT THERAPY
  8. WARFARIN [Suspect]
     Active Substance: WARFARIN
     Indication: ANTICOAGULANT THERAPY

REACTIONS (1)
  - Drug ineffective [Unknown]
